FAERS Safety Report 4767053-2 (Version None)
Quarter: 2005Q3

REPORT INFORMATION
  Report Type: 
  Country: None (occurrence: None)
  Receive Date: 20050913
  Receipt Date: 20050908
  Transmission Date: 20060218
  Serious: Yes (Death, Hospitalization)
  Sender: FDA-Public Use
  Company Number: 2005CG01501

PATIENT
  Age: 85 Year
  Sex: Female
  Weight: 75 kg

DRUGS (12)
  1. NEXIUM [Suspect]
     Route: 048
     Dates: start: 20040824, end: 20040829
  2. TOPALGIC [Suspect]
     Route: 048
     Dates: start: 20040824, end: 20040829
  3. KETOPROFEN [Suspect]
     Route: 048
     Dates: start: 20040824, end: 20040829
  4. MYOLASTAN [Suspect]
     Route: 048
     Dates: start: 20040824, end: 20040829
  5. DI-ANTALVIC [Suspect]
     Route: 048
     Dates: start: 20040824, end: 20040829
  6. TENORMIN [Concomitant]
     Route: 048
  7. THYROXINE [Concomitant]
  8. LASILIX [Concomitant]
  9. CITALOPRAM HYDROBROMIDE [Concomitant]
  10. ELISOR [Concomitant]
  11. CAPTOPRIL [Concomitant]
  12. LOVENOX [Concomitant]

REACTIONS (8)
  - COLITIS [None]
  - DIVERTICULAR PERFORATION [None]
  - DIVERTICULITIS [None]
  - GASTROINTESTINAL NECROSIS [None]
  - HYPERHIDROSIS [None]
  - HYPOTENSION [None]
  - SEPTIC SHOCK [None]
  - TACHYPNOEA [None]
